FAERS Safety Report 8057239-6 (Version None)
Quarter: 2012Q1

REPORT INFORMATION
  Report Type: 
  Country: None (occurrence: None)
  Receive Date: 20120119
  Receipt Date: 20120116
  Transmission Date: 20120608
  Serious: Yes (Hospitalization, Other)
  Sender: FDA-Public Use
  Company Number: PHHY2012BR004241

PATIENT
  Age: 49 Year
  Sex: Male

DRUGS (4)
  1. SIMVASTATIN [Concomitant]
     Dosage: UNK
  2. ASPIRIN [Concomitant]
     Dosage: UNK
  3. EXFORGE [Suspect]
     Indication: HYPERTENSION
     Dosage: 1 DF DAILY
  4. CLOPIDOGREL [Concomitant]
     Dosage: UNK

REACTIONS (3)
  - CEREBROVASCULAR ACCIDENT [None]
  - ISCHAEMIA [None]
  - INFARCTION [None]
